FAERS Safety Report 6368255-4 (Version None)
Quarter: 2009Q3

REPORT INFORMATION
  Report Type: 
  Country: None (occurrence: None)
  Receive Date: 20090916
  Receipt Date: 20090916
  Transmission Date: 20100115
  Serious: Yes (Hospitalization)
  Sender: FDA-Public Use
  Company Number: None

PATIENT
  Age: 66 Year
  Sex: Male
  Weight: 64 kg

DRUGS (1)
  1. DEXAMETHASONE [Suspect]
     Indication: NEOPLASM MALIGNANT
     Dosage: 12 MG EVERY DAY PO
     Route: 048
     Dates: start: 20090904, end: 20090906

REACTIONS (12)
  - AGGRESSION [None]
  - AGITATION [None]
  - CONFUSIONAL STATE [None]
  - DELIRIUM [None]
  - HYPONATRAEMIA [None]
  - HYPOTENSION [None]
  - HYPOXIA [None]
  - INFECTION [None]
  - LUNG INFILTRATION [None]
  - NO THERAPEUTIC RESPONSE [None]
  - PULSE ABSENT [None]
  - URINE OUTPUT DECREASED [None]
